FAERS Safety Report 12632188 (Version 2)
Quarter: 2016Q3

REPORT INFORMATION
  Report Type: Spontaneous
  Country: US (occurrence: US)
  Receive Date: 20160808
  Receipt Date: 20160808
  Transmission Date: 20161109
  Serious: No
  Sender: FDA-Public Use
  Company Number: US-BEH-2016062127

PATIENT
  Sex: Female
  Weight: 51 kg

DRUGS (14)
  1. TUMS [Concomitant]
     Active Substance: CALCIUM CARBONATE
  2. VITAMIN D [Concomitant]
     Active Substance: CHOLECALCIFEROL
  3. XOPENEX [Concomitant]
     Active Substance: LEVALBUTEROL HYDROCHLORIDE
  4. DIPHENHYDRAMINE. [Concomitant]
     Active Substance: DIPHENHYDRAMINE
  5. CREON [Concomitant]
     Active Substance: PANCRELIPASE AMYLASE\PANCRELIPASE LIPASE\PANCRELIPASE PROTEASE
  6. CYTOMEL [Concomitant]
     Active Substance: LIOTHYRONINE SODIUM
  7. SYNTHROID [Concomitant]
     Active Substance: LEVOTHYROXINE SODIUM
  8. ACETAMINOPHEN. [Concomitant]
     Active Substance: ACETAMINOPHEN
  9. LIDOCAINE. [Concomitant]
     Active Substance: LIDOCAINE
  10. ALVESCO [Concomitant]
     Active Substance: CICLESONIDE
  11. CRANBERRY. [Concomitant]
     Active Substance: CRANBERRY
  12. HIZENTRA [Suspect]
     Active Substance: HUMAN IMMUNOGLOBULIN G
     Indication: IMMUNODEFICIENCY COMMON VARIABLE
     Route: 058
     Dates: start: 20160202
  13. EPIPEN [Concomitant]
     Active Substance: EPINEPHRINE
  14. NUVARING [Concomitant]
     Active Substance: ETHINYL ESTRADIOL\ETONOGESTREL

REACTIONS (1)
  - Sinusitis [Unknown]
